FAERS Safety Report 10383378 (Version 2)
Quarter: 2014Q3

REPORT INFORMATION
  Report Type: Spontaneous
  Country: FR (occurrence: FR)
  Receive Date: 20140814
  Receipt Date: 20140814
  Transmission Date: 20150326
  Serious: Yes (Other)
  Sender: FDA-Public Use
  Company Number: FR-LEO PHARMA-228631

PATIENT
  Age: 93 Year
  Sex: Female

DRUGS (1)
  1. PICATO [Suspect]
     Active Substance: INGENOL MEBUTATE
     Indication: ACTINIC KERATOSIS
     Route: 061
     Dates: start: 20140625, end: 20140625

REACTIONS (5)
  - Application site discharge [Recovered/Resolved]
  - Application site pain [Recovered/Resolved]
  - Application site erosion [Recovered/Resolved]
  - Wrong technique in drug usage process [Unknown]
  - Incorrect drug administration duration [Unknown]

NARRATIVE: CASE EVENT DATE: 20140625
